FAERS Safety Report 15963582 (Version 2)
Quarter: 2019Q1

REPORT INFORMATION
  Report Type: Spontaneous
  Country: US (occurrence: US)
  Receive Date: 20190214
  Receipt Date: 20190328
  Transmission Date: 20190417
  Serious: No
  Sender: FDA-Public Use
  Company Number: US-PFIZER INC-2019062910

PATIENT
  Age: 56 Year
  Sex: Male
  Weight: 85 kg

DRUGS (2)
  1. CHANTIX [Suspect]
     Active Substance: VARENICLINE TARTRATE
     Indication: SMOKING CESSATION THERAPY
     Dosage: 1X/DAY, ONE A DAY(ONE A DAY FOR THE FIRST 3 DAYS)
     Dates: start: 2019
  2. CHANTIX [Interacting]
     Active Substance: VARENICLINE TARTRATE
     Dosage: 2X/DAY, TWICE A DAY(THEN IT INCREASED TO TWICE A DAY)

REACTIONS (4)
  - Drug interaction [Recovering/Resolving]
  - Product dose omission [Unknown]
  - Nausea [Recovering/Resolving]
  - Drug ineffective [Unknown]
